FAERS Safety Report 7496337-2 (Version None)
Quarter: 2011Q2

REPORT INFORMATION
  Report Type: 
  Country: None (occurrence: None)
  Receive Date: 20110523
  Receipt Date: 20110518
  Transmission Date: 20111010
  Serious: Yes (Death)
  Sender: FDA-Public Use
  Company Number: ES-ELI_LILLY_AND_COMPANY-ES201105005393

PATIENT
  Age: 59 Year
  Sex: Male

DRUGS (1)
  1. ALIMTA [Suspect]
     Indication: LUNG NEOPLASM MALIGNANT
     Dosage: 720 UG, UNKNOWN
     Route: 042
     Dates: start: 20110307, end: 20110307

REACTIONS (2)
  - PANCYTOPENIA [None]
  - SEPTIC SHOCK [None]
